FAERS Safety Report 18769106 (Version 1)
Quarter: 2021Q1

REPORT INFORMATION
  Report Type: Spontaneous
  Country: US (occurrence: US)
  Receive Date: 20210121
  Receipt Date: 20210121
  Transmission Date: 20210419
  Serious: Yes (Other)
  Sender: FDA-Public Use
  Company Number: US-PFIZER INC-2021019063

PATIENT
  Age: 16 Year
  Sex: Male

DRUGS (1)
  1. KETAMINE HCL [Suspect]
     Active Substance: KETAMINE HYDROCHLORIDE
     Indication: ABDOMINAL PAIN
     Dosage: 2?3 TIMES PER WEEK

REACTIONS (3)
  - Off label use [Unknown]
  - Biliary tract disorder [Unknown]
  - Cystitis ulcerative [Unknown]
